FAERS Safety Report 6703100-6 (Version None)
Quarter: 2010Q2

REPORT INFORMATION
  Report Type: 
  Country: None (occurrence: None)
  Receive Date: 20100430
  Receipt Date: 20100428
  Transmission Date: 20101027
  Serious: Yes (Hospitalization)
  Sender: FDA-Public Use
  Company Number: US-BIOGENIDEC-2009BI024612

PATIENT
  Age: 49 Year
  Sex: Female
  Weight: 90 kg

DRUGS (3)
  1. TYSABRI [Suspect]
     Indication: MULTIPLE SCLEROSIS
     Route: 042
     Dates: start: 20070323
  2. BACLOFEN [Concomitant]
     Indication: PAIN
     Dates: end: 20090101
  3. BACLOFEN [Concomitant]
     Indication: MUSCLE SPASTICITY
     Dates: end: 20090101

REACTIONS (17)
  - ABASIA [None]
  - ARTERIAL HAEMORRHAGE [None]
  - ASTHENIA [None]
  - CEREBROVASCULAR ACCIDENT [None]
  - COMA [None]
  - FALL [None]
  - FEELING ABNORMAL [None]
  - HEAD DEFORMITY [None]
  - HEAD INJURY [None]
  - LOSS OF CONSCIOUSNESS [None]
  - MEMORY IMPAIRMENT [None]
  - MUSCLE SPASTICITY [None]
  - MUSCULAR WEAKNESS [None]
  - PAIN [None]
  - SPEECH DISORDER [None]
  - STRESS [None]
  - VERTIGO [None]
